FAERS Safety Report 6998762-2 (Version None)
Quarter: 2010Q3

REPORT INFORMATION
  Report Type: 
  Country: None (occurrence: None)
  Receive Date: 20100920
  Receipt Date: 20100428
  Transmission Date: 20110219
  Serious: No
  Sender: FDA-Public Use
  Company Number: US-ASTRAZENECA-2010SE19211

PATIENT
  Sex: Male

DRUGS (1)
  1. SEROQUEL [Suspect]
     Indication: INSOMNIA
     Route: 048

REACTIONS (5)
  - CARDIAC DISORDER [None]
  - FEAR OF DEATH [None]
  - LIVER DISORDER [None]
  - RENAL DISORDER [None]
  - WEIGHT INCREASED [None]
